FAERS Safety Report 7644214-6 (Version None)
Quarter: 2011Q3

REPORT INFORMATION
  Report Type: 
  Country: None (occurrence: None)
  Receive Date: 20110729
  Receipt Date: 20110727
  Transmission Date: 20111222
  Serious: Yes (Other)
  Sender: FDA-Public Use
  Company Number: CA-BAYER-201021880NA

PATIENT
  Age: 34 Year
  Sex: Female
  Weight: 77 kg

DRUGS (6)
  1. ORTHO TRI-CYCLEN LO [Suspect]
     Indication: ORAL CONTRACEPTION
     Dosage: UNK UNK, UNK
     Route: 048
     Dates: start: 20090906, end: 20100506
  2. ADVIL LIQUI-GELS [Concomitant]
     Indication: DYSMENORRHOEA
     Dosage: 200 MG, PRN
     Route: 048
     Dates: start: 20090105
  3. ORTHO TRI-CYCLEN LO [Suspect]
     Dosage: UNK UNK, UNK
     Route: 048
     Dates: start: 20090906, end: 20100506
  4. ADVIL LIQUI-GELS [Concomitant]
     Indication: TENSION HEADACHE
     Dosage: 200 MG, PRN
     Route: 048
     Dates: start: 20100101
  5. ORTHO TRI-CYCLEN LO [Suspect]
     Dosage: UNK UNK, UNK
     Route: 048
     Dates: start: 20090906, end: 20100506
  6. ADVIL LIQUI-GELS [Concomitant]
     Indication: MIGRAINE WITH AURA
     Dosage: UNK
     Route: 048
     Dates: start: 20100310, end: 20100310

REACTIONS (4)
  - MIGRAINE WITH AURA [None]
  - EYE MOVEMENT DISORDER [None]
  - DISORIENTATION [None]
  - SPEECH DISORDER [None]
